FAERS Safety Report 8494482-6 (Version None)
Quarter: 2012Q3

REPORT INFORMATION
  Report Type: 
  Country: None (occurrence: None)
  Receive Date: 20120709
  Receipt Date: 20120704
  Transmission Date: 20120928
  Serious: Yes (Death)
  Sender: FDA-Public Use
  Company Number: US-SANOFI-AVENTIS-2012SA047647

PATIENT
  Age: 90 Year
  Sex: Female

DRUGS (18)
  1. ATENOLOL [Suspect]
     Route: 048
  2. LISINOPRIL [Suspect]
     Route: 048
  3. HYDRALAZINE HYDROCHLORIDE [Suspect]
     Route: 048
  4. HYDRALAZINE HYDROCHLORIDE [Suspect]
     Route: 048
  5. WARFARIN SODIUM [Suspect]
     Route: 048
  6. ATENOLOL [Suspect]
     Route: 048
  7. FUROSEMIDE [Suspect]
     Route: 048
  8. GLYBURIDE [Suspect]
     Route: 048
  9. ZAROXOLYN [Suspect]
     Route: 048
  10. DILTIAZEM HCL [Suspect]
     Dosage: CONTROLLED DELIVERY
     Route: 048
  11. WARFARIN SODIUM [Suspect]
     Route: 048
  12. POTASSIUM CHLORIDE [Suspect]
     Route: 048
  13. GLYBURIDE [Suspect]
     Route: 048
  14. DILTIAZEM HCL [Suspect]
     Route: 048
  15. POTASSIUM CHLORIDE [Suspect]
     Route: 048
  16. FUROSEMIDE [Suspect]
     Route: 048
  17. LISINOPRIL [Suspect]
     Route: 048
  18. ZAROXOLYN [Suspect]
     Route: 048

REACTIONS (3)
  - BRADYCARDIA [None]
  - ACCIDENTAL OVERDOSE [None]
  - SHOCK [None]
